FAERS Safety Report 5063615-6 (Version None)
Quarter: 2006Q3

REPORT INFORMATION
  Report Type: 
  Country: None (occurrence: None)
  Receive Date: 20060703
  Receipt Date: 20051115
  Transmission Date: 20061208
  Serious: No
  Sender: FDA-Public Use
  Company Number: 2005S1011153

PATIENT
  Age: 48 Year
  Sex: Male

DRUGS (9)
  1. CLOZAPINE [Suspect]
     Indication: SCHIZOPHRENIA, PARANOID TYPE
     Dosage: 200 MG;QAM;PO; SEE IMAGE
     Route: 048
     Dates: start: 20030501
  2. CLOZAPINE [Suspect]
     Indication: SCHIZOPHRENIA, PARANOID TYPE
     Dosage: 200 MG;QAM;PO; SEE IMAGE
     Route: 048
     Dates: start: 20030501
  3. RISPERIDONE [Concomitant]
  4. BENZTROPINE MESYLATE [Concomitant]
  5. VALPROATE SODIUM [Concomitant]
  6. DOCUSATE [Concomitant]
  7. LISINOPRIL [Concomitant]
  8. METFORMIN [Concomitant]
  9. PRAVASTATIN SODIUM [Concomitant]

REACTIONS (1)
  - GRANULOCYTOPENIA [None]
